FAERS Safety Report 8645528 (Version 4)
Quarter: 2012Q4

REPORT INFORMATION
  Report Type: 
  Country: BG (occurrence: BG)
  Receive Date: 20120702
  Receipt Date: 20121011
  Transmission Date: 20130627
  Serious: Yes (Death, Other)
  Sender: FDA-Public Use
  Company Number: BG-CELGENEUS-022-21880-12063253

PATIENT
  Age: 54 Year
  Sex: Female
  Weight: 63 kg

DRUGS (18)
  1. REVLIMID [Suspect]
     Indication: MULTIPLE MYELOMA
     Dosage: 25 Milligram
     Route: 048
     Dates: start: 20120530, end: 20120607
  2. CYCLOPHOSPHAMIDE [Suspect]
     Indication: MULTIPLE MYELOMA
     Dosage: 1000 Milligram
     Route: 065
     Dates: start: 20120523, end: 20120525
  3. VINCRISTINE [Suspect]
     Indication: MULTIPLE MYELOMA
     Dosage: 2 Milligram
     Route: 065
     Dates: start: 20120526, end: 20120602
  4. DOXORUBICINE [Suspect]
     Indication: MULTIPLE MYELOMA
     Dosage: 80 Milligram
     Route: 065
     Dates: start: 20120526, end: 20120526
  5. DEXAMETHASONE [Suspect]
     Indication: MULTIPLE MYELOMA
     Dosage: 40 Milligram
     Route: 065
     Dates: start: 20120523, end: 20120526
  6. DEXAMETHASONE [Suspect]
     Dosage: 40 Milligram
     Route: 065
     Dates: start: 20120602, end: 20120605
  7. DEXAMETHASONE [Suspect]
     Dosage: 20 Milligram
     Route: 065
     Dates: start: 20120516, end: 20120519
  8. UROMITHEXANE [Concomitant]
     Indication: MULTIPLE MYELOMA
     Dosage: 800 Milligram
     Route: 065
     Dates: start: 20120523, end: 20120525
  9. NEXIUM [Concomitant]
     Indication: DRUG USE FOR UNKNOWN INDICATION
     Dosage: 1 Tablet
     Route: 065
     Dates: start: 20120518, end: 20120605
  10. ELECTROLYTE INFUSIONS [Concomitant]
     Indication: DRUG USE FOR UNKNOWN INDICATION
     Route: 041
  11. PROBITOR [Concomitant]
     Indication: DRUG USE FOR UNKNOWN INDICATION
     Dosage: 1 Dosage forms
     Route: 065
     Dates: start: 20120515, end: 20120610
  12. MILGAMMA [Concomitant]
     Indication: DRUG USE FOR UNKNOWN INDICATION
     Dosage: 1 Dosage forms
     Route: 065
     Dates: start: 20120519, end: 20120605
  13. ATROPINE [Concomitant]
     Indication: DRUG USE FOR UNKNOWN INDICATION
     Route: 065
     Dates: end: 20120611
  14. SODIUM CARBONATE [Concomitant]
     Indication: DRUG USE FOR UNKNOWN INDICATION
     Route: 065
     Dates: end: 20120611
  15. TEVAGRASTIM [Concomitant]
     Indication: COLONY STIMULATING FACTOR PROPHYLAXIS
     Route: 065
     Dates: start: 201204, end: 201206
  16. DOPAMINE [Concomitant]
     Indication: DRUG USE FOR UNKNOWN INDICATION
     Route: 041
     Dates: end: 20120611
  17. LYRICA [Concomitant]
     Indication: DRUG USE FOR UNKNOWN INDICATION
     Dosage: 75 Milligram
     Route: 065
     Dates: start: 20120520, end: 20120605
  18. SODIUM BICARBONATE [Concomitant]
     Indication: DRUG USE FOR UNKNOWN INDICATION
     Route: 065

REACTIONS (2)
  - Circulatory collapse [Fatal]
  - Bone marrow failure [Fatal]
